FAERS Safety Report 5257047-5 (Version None)
Quarter: 2007Q1

REPORT INFORMATION
  Report Type: 
  Country: None (occurrence: None)
  Receive Date: 20070307
  Receipt Date: 20070223
  Transmission Date: 20070707
  Serious: Yes (Other)
  Sender: FDA-Public Use
  Company Number: PHNR2007AU00763

PATIENT
  Sex: Female

DRUGS (2)
  1. MIRENA [Suspect]
  2. TEGRETOL [Suspect]
     Indication: EPILEPSY
     Dosage: 400 MG, TID (7.00 AM,12.00 PM AND 8-9 PM)

REACTIONS (3)
  - BRAIN OPERATION [None]
  - DIZZINESS [None]
  - DRUG INTERACTION [None]
